FAERS Safety Report 4461865-0 (Version None)
Quarter: 2004Q3

REPORT INFORMATION
  Report Type: 
  Country: None (occurrence: None)
  Receive Date: 20040929
  Receipt Date: 20031105
  Transmission Date: 20050211
  Serious: No
  Sender: FDA-Public Use
  Company Number: US-GLAXOSMITHKLINE-A0433134A

PATIENT
  Age: 77 Year
  Sex: Female

DRUGS (6)
  1. SEREVENT [Suspect]
     Dosage: 1PUFF TWICE PER DAY
     Route: 055
     Dates: start: 20031023
  2. ATROVENT [Concomitant]
  3. MAXAIR [Concomitant]
  4. AZMACORT [Concomitant]
  5. ASPIRIN [Concomitant]
  6. MULTIVITAMIN [Concomitant]

REACTIONS (1)
  - DYSPNOEA [None]
